FAERS Safety Report 11225347 (Version 1)
Quarter: 2015Q2

REPORT INFORMATION
  Report Type: Spontaneous
  Country: US (occurrence: None)
  Receive Date: 20150626
  Receipt Date: 20150626
  Transmission Date: 20150821
  Serious: Yes (Other)
  Sender: FDA-Public Use
  Company Number: None

PATIENT
  Age: 42 Year
  Sex: Female
  Weight: 74.5 kg

DRUGS (2)
  1. CELECOXIB. [Suspect]
     Active Substance: CELECOXIB
     Indication: IRITIS
     Dosage: 200MG, 1-2 DAY, ORAL
     Route: 048
     Dates: start: 20150417, end: 20150422
  2. CELECOXIB. [Suspect]
     Active Substance: CELECOXIB
     Indication: ANKYLOSING SPONDYLITIS
     Dosage: 200MG, 1-2 DAY, ORAL
     Route: 048
     Dates: start: 20150417, end: 20150422

REACTIONS (4)
  - Colitis ulcerative [None]
  - Iritis [None]
  - Product substitution issue [None]
  - Arthralgia [None]

NARRATIVE: CASE EVENT DATE: 20150421
